FAERS Safety Report 5065179-X (Version None)
Quarter: 2006Q3

REPORT INFORMATION
  Report Type: 
  Country: None (occurrence: None)
  Receive Date: 20060706
  Receipt Date: 20060111
  Transmission Date: 20061208
  Serious: Yes (Hospitalization, Other)
  Sender: FDA-Public Use
  Company Number: 23784

PATIENT
  Age: 22 Year
  Sex: Male
  Weight: 68.0396 kg

DRUGS (3)
  1. MIDAZOLAM HCL [Suspect]
     Indication: CONFUSIONAL STATE
     Dosage: 3MG/IVP + 2MG/IVP + 3MG/IVP
     Dates: start: 20060111
  2. MIDAZOLAM HCL [Suspect]
     Indication: CONVULSION
     Dosage: 3MG/IVP + 2MG/IVP + 3MG/IVP
     Dates: start: 20060111
  3. 10 MG HALDOL [Concomitant]

REACTIONS (4)
  - AGITATION [None]
  - CONFUSIONAL STATE [None]
  - CONVULSION [None]
  - HYPERSENSITIVITY [None]
